FAERS Safety Report 9221593 (Version 2)
Quarter: 2013Q2

REPORT INFORMATION
  Report Type: Spontaneous
  Country: GB (occurrence: GB)
  Receive Date: 20130410
  Receipt Date: 20130524
  Transmission Date: 20140414
  Serious: Yes (Hospitalization, Other)
  Sender: FDA-Public Use
  Company Number: GB-009507513-1302GBR005399

PATIENT
  Age: 52 Year
  Sex: Male
  Weight: 70 kg

DRUGS (5)
  1. VICTRELIS [Suspect]
     Indication: HEPATITIS C
     Dosage: 800 MG, TID
     Route: 048
     Dates: start: 20130114, end: 20130210
  2. VICTRELIS [Suspect]
     Dosage: UNK
     Route: 048
     Dates: start: 201202, end: 201204
  3. REBETOL [Suspect]
     Indication: HEPATITIS C
     Dosage: 1000 MG DAILY
     Route: 048
     Dates: start: 201210, end: 20130210
  4. PEGASYS [Suspect]
     Indication: HEPATITIS C
     Dosage: 180 MICROGRAM DAILY
     Dates: start: 201210, end: 20130210
  5. TACROLIMUS [Concomitant]
     Dosage: 1 G DAILY
     Dates: start: 2012

REACTIONS (1)
  - Neutropenic sepsis [Recovered/Resolved]
